FAERS Safety Report 7466461-9 (Version None)
Quarter: 2011Q2

REPORT INFORMATION
  Report Type: 
  Country: None (occurrence: None)
  Receive Date: 20110509
  Receipt Date: 20110429
  Transmission Date: 20111010
  Serious: Yes (Other)
  Sender: FDA-Public Use
  Company Number: DK-TEVA-279071ISR

PATIENT
  Sex: Male

DRUGS (2)
  1. LAMOTRIGINE [Suspect]
     Indication: EPILEPSY
  2. ACETAMINOPHEN [Interacting]
     Indication: HEADACHE
     Dosage: PARACETAMOL ORIFARM
     Dates: start: 20110403, end: 20110404

REACTIONS (2)
  - CONVULSION [None]
  - DRUG INTERACTION [None]
